FAERS Safety Report 9511417 (Version 1)
Quarter: 2013Q3

REPORT INFORMATION
  Report Type: Spontaneous
  Country: GB (occurrence: GB)
  Receive Date: 20130910
  Receipt Date: 20130910
  Transmission Date: 20140515
  Serious: Yes (Life-Threatening)
  Sender: FDA-Public Use
  Company Number: GB-JNJFOC-20130900874

PATIENT
  Age: 17 Year
  Sex: Male

DRUGS (4)
  1. RISPERIDONE [Suspect]
     Indication: HYPOMANIA
     Route: 048
     Dates: end: 20130802
  2. RISPERIDONE [Suspect]
     Indication: HYPOMANIA
     Route: 048
     Dates: start: 20130307
  3. OMEPRAZOLE [Concomitant]
     Route: 048
  4. FLUOXETINE [Concomitant]
     Route: 048
     Dates: end: 20130802

REACTIONS (2)
  - Cardiomegaly [Unknown]
  - Cardiomyopathy [Not Recovered/Not Resolved]
